FAERS Safety Report 9347818 (Version 2)
Quarter: 2014Q1

REPORT INFORMATION
  Report Type: Spontaneous
  Country: US (occurrence: US)
  Receive Date: 20130614
  Receipt Date: 20140219
  Transmission Date: 20141002
  Serious: Yes (Hospitalization)
  Sender: FDA-Public Use
  Company Number: US-PFIZER INC-2013178105

PATIENT
  Age: 51 Year
  Sex: Female
  Weight: 49.89 kg

DRUGS (7)
  1. LYRICA [Suspect]
     Indication: GRAND MAL CONVULSION
     Dosage: 50 MG, 3X/DAY
     Route: 048
  2. LYRICA [Suspect]
     Indication: PETIT MAL EPILEPSY
     Dosage: 200 MG, 2X/DAY
     Route: 048
  3. LYRICA [Suspect]
     Indication: CONVULSION
     Dosage: 300 MG, 2X/DAY
     Route: 048
  4. LYRICA [Suspect]
     Indication: CONVULSION
  5. PROPRANOLOL [Concomitant]
     Indication: HYPERTENSION
     Dosage: 100 MG, DAILY
  6. SYMBICORT [Concomitant]
     Indication: EMPHYSEMA
     Dosage: UNK
     Dates: start: 2013
  7. KEPPRA [Concomitant]
     Indication: CONVULSION
     Dosage: 2000 MG, 2X/DAY

REACTIONS (2)
  - Mental status changes [Unknown]
  - Drug ineffective [Unknown]
